FAERS Safety Report 6731741-9 (Version None)
Quarter: 2010Q2

REPORT INFORMATION
  Report Type: 
  Country: None (occurrence: None)
  Receive Date: 20100519
  Receipt Date: 20100513
  Transmission Date: 20101027
  Serious: Yes (Other)
  Sender: FDA-Public Use
  Company Number: US-PFIZER INC-2010040447

PATIENT
  Sex: Male
  Weight: 96 kg

DRUGS (11)
  1. CHANTIX [Interacting]
     Indication: TOBACCO USER
     Dosage: 0.5 MG, UNK
     Route: 048
     Dates: start: 20100309, end: 20100318
  2. NEURONTIN [Suspect]
     Dosage: UNK
  3. MORPHINE SULFATE [Interacting]
     Indication: PAIN
     Dosage: UNK
  4. CYMBALTA [Interacting]
     Indication: DEPRESSION
     Dosage: UNK
  5. NORCO [Interacting]
     Indication: PAIN
     Dosage: UNK
  6. ACTOS [Concomitant]
     Dosage: UNK
  7. TEMAZEPAM [Concomitant]
     Dosage: UNK
  8. SIMVASTATIN [Concomitant]
     Dosage: UNK
  9. RANITIDINE [Concomitant]
     Dosage: UNK
  10. ALPRAZOLAM [Concomitant]
     Dosage: UNK
  11. MONOPRIL [Concomitant]
     Dosage: UNK

REACTIONS (9)
  - BLOOD GLUCOSE DECREASED [None]
  - DEPRESSED MOOD [None]
  - DEPRESSION [None]
  - DRUG EFFECT DECREASED [None]
  - DRUG INTERACTION [None]
  - FATIGUE [None]
  - INFLUENZA LIKE ILLNESS [None]
  - NAUSEA [None]
  - PAIN [None]
